FAERS Safety Report 22325342 (Version 1)
Quarter: 2023Q2

REPORT INFORMATION
  Report Type: Spontaneous
  Country: US (occurrence: US)
  Receive Date: 20230516
  Receipt Date: 20230516
  Transmission Date: 20230721
  Serious: No
  Sender: FDA-Public Use
  Company Number: US-PERRIGO-22US016121

PATIENT

DRUGS (1)
  1. NAPROXEN SODIUM AND DIPHENHYDRAMINE HYDROCHLORIDE [Suspect]
     Active Substance: DIPHENHYDRAMINE HYDROCHLORIDE\NAPROXEN SODIUM
     Indication: Insomnia
     Dosage: 1 CAPLET, PRN
     Route: 048
     Dates: start: 202212, end: 20221204

REACTIONS (4)
  - Peripheral swelling [Recovering/Resolving]
  - Skin tightness [Recovering/Resolving]
  - Limb discomfort [Recovering/Resolving]
  - Incorrect dose administered [Recovered/Resolved]

NARRATIVE: CASE EVENT DATE: 20221201
